FAERS Safety Report 6295414-1 (Version None)
Quarter: 2009Q3

REPORT INFORMATION
  Report Type: 
  Country: None (occurrence: None)
  Receive Date: 20090803
  Receipt Date: 20090722
  Transmission Date: 20100115
  Serious: Yes (Hospitalization, Other)
  Sender: FDA-Public Use
  Company Number: PHHY2009ES30309

PATIENT
  Age: 70 Year
  Sex: Male

DRUGS (4)
  1. CARBAMAZEPINE [Suspect]
     Indication: TRIGEMINAL NEURALGIA
     Dosage: 900 MG DAILY
  2. CARBAMAZEPINE [Suspect]
     Dosage: 1200 MG DAILY
  3. AMITRIPTYLINE HCL [Concomitant]
     Dosage: 25 MG DAILY
  4. GABAPENTIN [Concomitant]
     Dosage: 1800 MG DAILY

REACTIONS (7)
  - CEREBELLAR ARTERY OCCLUSION [None]
  - COGNITIVE DISORDER [None]
  - EATING DISORDER [None]
  - PAIN [None]
  - SPEECH DISORDER [None]
  - SURGERY [None]
  - WEIGHT DECREASED [None]
